FAERS Safety Report 25329818 (Version 2)
Quarter: 2025Q2

REPORT INFORMATION
  Report Type: Report from Study
  Country: US (occurrence: US)
  Receive Date: 20250519
  Receipt Date: 20250611
  Transmission Date: 20250717
  Serious: Yes (Hospitalization)
  Sender: ALEXION PHARMACEUTICALS
  Company Number: US-AstraZeneca-CH-00868999A

PATIENT

DRUGS (2)
  1. ULTOMIRIS [Suspect]
     Active Substance: RAVULIZUMAB-CWVZ
     Indication: Myasthenia gravis
     Route: 065
  2. Immunoglobulin [Concomitant]
     Route: 065

REACTIONS (4)
  - Visual impairment [Unknown]
  - Haemorrhage [Unknown]
  - Hypoaesthesia [Unknown]
  - Arthropod bite [Unknown]
